FAERS Safety Report 7510670-7 (Version None)
Quarter: 2011Q2

REPORT INFORMATION
  Report Type: 
  Country: None (occurrence: None)
  Receive Date: 20110530
  Receipt Date: 20110526
  Transmission Date: 20111010
  Serious: Yes (Death, Hospitalization, Other)
  Sender: FDA-Public Use
  Company Number: PHHY2011BR45765

PATIENT
  Sex: Female

DRUGS (2)
  1. PROLOPA [Concomitant]
  2. ZOLEDRONIC ACID [Suspect]
     Indication: OSTEOPOROSIS
     Dosage: 5 MG/100ML
     Route: 042
     Dates: start: 20100501

REACTIONS (2)
  - CEREBROVASCULAR ACCIDENT [None]
  - NOSOCOMIAL INFECTION [None]
